FAERS Safety Report 10720915 (Version 1)
Quarter: 2015Q1

REPORT INFORMATION
  Report Type: Spontaneous
  Country: US (occurrence: US)
  Receive Date: 20150119
  Receipt Date: 20150119
  Transmission Date: 20150721
  Serious: No
  Sender: FDA-Public Use
  Company Number: US-UNITED THERAPEUTICS-UNT-2014-006298

PATIENT
  Sex: Female
  Weight: 86.17 kg

DRUGS (3)
  1. ADCIRCA [Concomitant]
     Active Substance: TADALAFIL
     Indication: PRODUCT USED FOR UNKNOWN INDICATION
  2. REMODULIN [Suspect]
     Active Substance: TREPROSTINIL
     Indication: PULMONARY HYPERTENSION
     Dosage: 0.101 ?G/KG/MIN, CONTINUING
     Route: 058
     Dates: start: 20130521
  3. TRACLEER [Concomitant]
     Active Substance: BOSENTAN\BOSENTAN MONOHYDRATE
     Indication: PRODUCT USED FOR UNKNOWN INDICATION

REACTIONS (9)
  - Malaise [Not Recovered/Not Resolved]
  - Infusion site oedema [Unknown]
  - Nausea [Not Recovered/Not Resolved]
  - Infusion site pain [Unknown]
  - Vomiting [Not Recovered/Not Resolved]
  - Pain [Not Recovered/Not Resolved]
  - Chest discomfort [Unknown]
  - Headache [Not Recovered/Not Resolved]
  - Infusion site erythema [Unknown]
